FAERS Safety Report 23525922 (Version 1)
Quarter: 2024Q1

REPORT INFORMATION
  Report Type: Spontaneous
  Country: IT (occurrence: IT)
  Receive Date: 20240215
  Receipt Date: 20240215
  Transmission Date: 20240410
  Serious: Yes (Other)
  Sender: FDA-Public Use
  Company Number: IT-SUN PHARMACEUTICAL INDUSTRIES LTD-2024RR-431611

PATIENT
  Age: 23 Year
  Sex: Female

DRUGS (6)
  1. LORMETAZEPAM [Suspect]
     Active Substance: LORMETAZEPAM
     Indication: Borderline personality disorder
     Dosage: 10 MILLIGRAM, DAILY
     Route: 065
  2. LORMETAZEPAM [Suspect]
     Active Substance: LORMETAZEPAM
     Indication: Anorexia nervosa
  3. OLANZAPINE [Suspect]
     Active Substance: OLANZAPINE
     Indication: Borderline personality disorder
     Dosage: UP TO 20 MILLIGRAM, DAILY
     Route: 065
  4. OLANZAPINE [Suspect]
     Active Substance: OLANZAPINE
     Indication: Anorexia nervosa
  5. DELORAZEPAM [Suspect]
     Active Substance: DELORAZEPAM
     Indication: Borderline personality disorder
     Dosage: 2 MILLIGRAM, DAILY
     Route: 065
  6. DELORAZEPAM [Suspect]
     Active Substance: DELORAZEPAM
     Indication: Anorexia nervosa

REACTIONS (2)
  - Drug abuse [Unknown]
  - Therapeutic product effect incomplete [Unknown]
